FAERS Safety Report 21881274 (Version 1)
Quarter: 2023Q1

REPORT INFORMATION
  Report Type: Other
  Country: US (occurrence: None)
  Receive Date: 20230119
  Receipt Date: 20230119
  Transmission Date: 20230417
  Serious: No
  Sender: FDA-Public Use
  Company Number: US-Encube-000262

PATIENT
  Age: 3 Year
  Sex: Male

DRUGS (1)
  1. TESTOSTERONE [Suspect]
     Active Substance: TESTOSTERONE
     Indication: Product used for unknown indication
     Route: 062

REACTIONS (3)
  - Pseudoprecocious puberty [Unknown]
  - Accidental exposure to product by child [Unknown]
  - Exposure via skin contact [Recovered/Resolved]
